FAERS Safety Report 9885930 (Version 2)
Quarter: 2014Q1

REPORT INFORMATION
  Report Type: Spontaneous
  Country: DE (occurrence: DE)
  Receive Date: 20140210
  Receipt Date: 20140318
  Transmission Date: 20141002
  Serious: Yes (Hospitalization, Other)
  Sender: FDA-Public Use
  Company Number: PHHY2014DE015739

PATIENT
  Sex: Female
  Weight: 59 kg

DRUGS (4)
  1. ACLASTA [Suspect]
     Indication: OSTEOPOROSIS POSTMENOPAUSAL
     Dosage: 5 MG (YEARLY)
     Route: 042
     Dates: start: 20081023
  2. ACLASTA [Suspect]
     Dosage: 5 MG (YEARLY)
     Route: 042
     Dates: start: 20091112
  3. ACLASTA [Suspect]
     Dosage: 5 MG (YEARLY)
     Route: 042
     Dates: start: 20101111
  4. VITAMIN D3 [Concomitant]
     Indication: OSTEOPOROSIS
     Dosage: 1000 IE, UNK
     Route: 048
     Dates: start: 200807

REACTIONS (3)
  - Osteonecrosis of jaw [Recovered/Resolved]
  - Impaired healing [Unknown]
  - Fear [Unknown]
